FAERS Safety Report 9878794 (Version 2)
Quarter: 2014Q2

REPORT INFORMATION
  Report Type: Spontaneous
  Country: MX (occurrence: MX)
  Receive Date: 20140206
  Receipt Date: 20140429
  Transmission Date: 20141212
  Serious: Yes (Hospitalization, Other)
  Sender: FDA-Public Use
  Company Number: MX-VIIV HEALTHCARE LIMITED-A1059868A

PATIENT
  Age: 22 Year
  Sex: Male
  Weight: 60 kg

DRUGS (5)
  1. KIVEXA [Suspect]
     Indication: ANTIRETROVIRAL THERAPY
     Dosage: 1TAB PER DAY
     Route: 048
     Dates: start: 20140102, end: 20140120
  2. EFAVIRENZ [Suspect]
     Indication: ANTIRETROVIRAL THERAPY
     Dosage: 600MG PER DAY
     Route: 048
     Dates: start: 20140102, end: 20140120
  3. FLUCONAZOLE [Concomitant]
  4. BACTRIM [Concomitant]
  5. B COMPLEX [Concomitant]

REACTIONS (8)
  - Liver injury [Recovered/Resolved]
  - Osteomyelitis [Recovered/Resolved]
  - Histoplasmosis [Recovered/Resolved]
  - Feeling abnormal [Recovered/Resolved]
  - Ocular icterus [Recovered/Resolved]
  - Jaundice [Recovered/Resolved]
  - Transaminases increased [Recovered/Resolved]
  - Rash [Recovered/Resolved]
